FAERS Safety Report 5943452-8 (Version None)
Quarter: 2008Q4

REPORT INFORMATION
  Report Type: 
  Country: None (occurrence: None)
  Receive Date: 20081106
  Receipt Date: 20081026
  Transmission Date: 20090506
  Serious: Yes (Other)
  Sender: FDA-Public Use
  Company Number: US-JNJFOC-20081007489

PATIENT
  Age: 63 Year
  Sex: Female

DRUGS (5)
  1. INFLIXIMAB [Suspect]
     Indication: COLITIS ULCERATIVE
     Route: 042
  2. BALSALAZIDE DISODIUM [Suspect]
     Indication: COLITIS ULCERATIVE
  3. AZATHIOPRINE [Concomitant]
  4. IBANDRONATE SODIUM [Concomitant]
  5. CONJUGATED ESTROGEN [Concomitant]

REACTIONS (2)
  - LUNG DISORDER [None]
  - PLEURAL EFFUSION [None]
